FAERS Safety Report 9203429 (Version 2)
Quarter: 2013Q3

REPORT INFORMATION
  Report Type: Spontaneous
  Country: JP (occurrence: JP)
  Receive Date: 20130402
  Receipt Date: 20130731
  Transmission Date: 20140515
  Serious: No
  Sender: FDA-Public Use
  Company Number: JP-PFIZER INC-2013104744

PATIENT
  Age: 36 Year
  Sex: Female
  Weight: 103 kg

DRUGS (1)
  1. GABAPEN [Suspect]
     Dosage: 200 MG, 1X/DAY
     Route: 048
     Dates: start: 20100107

REACTIONS (4)
  - Pruritus [Recovered/Resolved]
  - Abdominal discomfort [Recovered/Resolved]
  - Oedema peripheral [Recovered/Resolved]
  - Somnolence [Recovered/Resolved]
